FAERS Safety Report 6679416-9 (Version None)
Quarter: 2010Q2

REPORT INFORMATION
  Report Type: 
  Country: None (occurrence: None)
  Receive Date: 20100413
  Receipt Date: 20100402
  Transmission Date: 20101027
  Serious: Yes (Other)
  Sender: FDA-Public Use
  Company Number: US-ROCHE-696042

PATIENT

DRUGS (11)
  1. BEVACIZUMAB [Suspect]
     Indication: MALIGNANT GLIOMA
     Dosage: DOSE:UNKNOWN, FREQUENCY: ON DAY 1 AND 15. LAST ADMINISTRATION DATE: 04 JANUARY 2010.
     Route: 042
     Dates: start: 20090302
  2. IRINOTECAN HCL [Suspect]
     Indication: MALIGNANT GLIOMA
     Dosage: STARTING ON DAY FIFTEEN.
     Route: 042
  3. LEVETIRACETAM [Concomitant]
     Dosage: LEVETRACETAM
     Dates: start: 20070501
  4. ONDANSETRON [Concomitant]
     Dates: start: 20090302
  5. KEPPRA [Concomitant]
     Route: 048
     Dates: start: 20070501
  6. OMEGA-3 SEAL OIL [Concomitant]
     Dosage: OMEGA 3 FISH OIL.
     Route: 048
     Dates: start: 20090101
  7. TURMERIC [Concomitant]
     Route: 048
     Dates: start: 20090101
  8. M.V.I. [Concomitant]
     Route: 048
     Dates: start: 20070301
  9. VITAMIN B-12 [Concomitant]
     Route: 048
     Dates: start: 20070301
  10. BACTRIM [Concomitant]
     Route: 048
     Dates: start: 20090401
  11. EMEND [Concomitant]
     Dosage: FREQUENCY: 125 MG PRIOR TO CHEMOTHERAPY.
     Route: 048
     Dates: start: 20090511

REACTIONS (1)
  - OSTEONECROSIS [None]
